FAERS Safety Report 5350159-7 (Version None)
Quarter: 2007Q2

REPORT INFORMATION
  Report Type: 
  Country: None (occurrence: None)
  Receive Date: 20070521
  Receipt Date: 20070313
  Transmission Date: 20071010
  Serious: No
  Sender: FDA-Public Use
  Company Number: WAES 0703USA02775

PATIENT
  Sex: Male

DRUGS (1)
  1. JANUVIA [Suspect]
     Dosage: 100 MG/DAILY/PO
     Route: 048

REACTIONS (2)
  - ARTHRALGIA [None]
  - ERYTHEMA [None]
